FAERS Safety Report 20534306 (Version 2)
Quarter: 2022Q1

REPORT INFORMATION
  Report Type: Other
  Country: US (occurrence: None)
  Receive Date: 20220302
  Receipt Date: 20220302
  Transmission Date: 20220423
  Serious: No
  Sender: FDA-Public Use
  Company Number: US-ROCHE-3034509

PATIENT
  Sex: Male

DRUGS (1)
  1. OCREVUS [Suspect]
     Active Substance: OCRELIZUMAB
     Indication: Relapsing multiple sclerosis
     Dosage: DATE OF NEXT TREATMENT: 30/JUN/2021, 22/JUL/2021
     Route: 065
     Dates: start: 2021

REACTIONS (3)
  - COVID-19 [Recovered/Resolved]
  - White blood cell count decreased [Unknown]
  - Immunosuppression [Unknown]
